FAERS Safety Report 15278642 (Version 2)
Quarter: 2018Q3

REPORT INFORMATION
  Report Type: Spontaneous
  Country: AR (occurrence: AR)
  Receive Date: 20180815
  Receipt Date: 20180815
  Transmission Date: 20181010
  Serious: Yes (Other)
  Sender: FDA-Public Use
  Company Number: PHHY2018AR060593

PATIENT
  Sex: Female

DRUGS (1)
  1. ISOPTO CARPINE [Suspect]
     Active Substance: PILOCARPINE HYDROCHLORIDE
     Indication: GLAUCOMA
     Dosage: (EVERY 5?6 HOURS AND EVERY 2 HOURS)
     Route: 047

REACTIONS (9)
  - Hypertension [Unknown]
  - Glaucoma [Recovering/Resolving]
  - Cataract [Unknown]
  - Bundle branch block left [Unknown]
  - Feeling of despair [Unknown]
  - Fear [Unknown]
  - Malaise [Unknown]
  - Gastric ulcer [Unknown]
  - Nervousness [Unknown]
